FAERS Safety Report 5140853-5 (Version None)
Quarter: 2006Q4

REPORT INFORMATION
  Report Type: 
  Country: None (occurrence: None)
  Receive Date: 20061025
  Receipt Date: 20061012
  Transmission Date: 20070319
  Serious: Yes (Other)
  Sender: FDA-Public Use
  Company Number: 2006114245

PATIENT
  Age: 42 Year
  Sex: Male

DRUGS (1)
  1. GEODON [Suspect]

REACTIONS (1)
  - NO ADVERSE EFFECT [None]
